FAERS Safety Report 9853193 (Version 1)
Quarter: 2014Q1

REPORT INFORMATION
  Report Type: Spontaneous
  Country: US (occurrence: US)
  Receive Date: 20140129
  Receipt Date: 20140129
  Transmission Date: 20141002
  Serious: No
  Sender: FDA-Public Use
  Company Number: US-BRACCO-009081

PATIENT
  Age: 57 Year
  Sex: Female
  Weight: 69 kg

DRUGS (3)
  1. MULTIHANCE [Suspect]
     Indication: NUCLEAR MAGNETIC RESONANCE IMAGING
     Route: 042
     Dates: start: 20120709, end: 20120709
  2. MULTIVITAMIN AND MINERAL [Concomitant]
     Dosage: MULTIVITAMIN CONTAINS 6.5 MG OF ZINC
  3. ZINC [Concomitant]
     Dates: start: 201207, end: 201209

REACTIONS (8)
  - Off label use [Unknown]
  - Nontherapeutic agent urine positive [Unknown]
  - Muscle tightness [Not Recovered/Not Resolved]
  - Fatigue [Not Recovered/Not Resolved]
  - Alopecia [Not Recovered/Not Resolved]
  - Weight decreased [Not Recovered/Not Resolved]
  - Pain in extremity [Not Recovered/Not Resolved]
  - Muscular weakness [Not Recovered/Not Resolved]
